FAERS Safety Report 7123889-4 (Version None)
Quarter: 2010Q4

REPORT INFORMATION
  Report Type: 
  Country: None (occurrence: None)
  Receive Date: 20101125
  Receipt Date: 20101027
  Transmission Date: 20110411
  Serious: Yes (Life-Threatening, Hospitalization)
  Sender: FDA-Public Use
  Company Number: GB-AMGEN-GBRCT2010001846

PATIENT

DRUGS (9)
  1. ETANERCEPT [Suspect]
     Indication: RHEUMATOID ARTHRITIS
     Dosage: 25 MG, 2 TIMES/WK
     Route: 058
  2. CELEBREX [Concomitant]
     Dosage: UNKNOWN
  3. DISTALGESIC [Concomitant]
     Dosage: UNKNOWN
  4. PREDNISOLONE [Concomitant]
     Dosage: UNKNOWN
  5. FOSAMAX [Concomitant]
     Dosage: UNKNOWN
  6. LANSOPRAZOLE [Concomitant]
     Dosage: UNKNOWN
  7. MYOCRISIN [Concomitant]
     Dosage: UNKNOWN
  8. METHOTREXATE [Concomitant]
     Dosage: UNKNOWN
     Dates: start: 20040211
  9. FOLIC ACID [Concomitant]
     Dosage: UNKNOWN

REACTIONS (2)
  - RENAL DISORDER [None]
  - VOMITING [None]
